FAERS Safety Report 4997805-5 (Version None)
Quarter: 2006Q2

REPORT INFORMATION
  Report Type: 
  Country: None (occurrence: None)
  Receive Date: 20060510
  Receipt Date: 20050907
  Transmission Date: 20061013
  Serious: No
  Sender: FDA-Public Use
  Company Number: US-BRISTOL-MYERS SQUIBB COMPANY-13102215

PATIENT
  Age: 89 Year
  Sex: Female
  Weight: 45 kg

DRUGS (5)
  1. MONOPRIL [Suspect]
     Dosage: PHYSICIAN INCREASED DOSAGE FROM 15MG DAILY TO 10MG TWICE A DAY (20MG DAILY) TWO WEEKS AGO
     Dates: start: 20050701
  2. XANAX [Concomitant]
  3. DYAZIDE [Concomitant]
  4. SYNTHROID [Concomitant]
  5. PREDNISONE TAB [Concomitant]

REACTIONS (1)
  - BLOOD PRESSURE FLUCTUATION [None]
